FAERS Safety Report 20317700 (Version 1)
Quarter: 2022Q1

REPORT INFORMATION
  Report Type: Other
  Country: US (occurrence: None)
  Receive Date: 20220110
  Receipt Date: 20220110
  Transmission Date: 20220423
  Serious: Yes (Other)
  Sender: FDA-Public Use
  Company Number: US-ROCHE-2994935

PATIENT
  Age: 31 Year
  Sex: Male

DRUGS (4)
  1. TRASTUZUMAB [Suspect]
     Active Substance: TRASTUZUMAB
     Indication: Metastatic neoplasm
     Route: 065
  2. GEMCITABINE [Suspect]
     Active Substance: GEMCITABINE
     Indication: Metastatic neoplasm
     Route: 065
  3. CARBOPLATIN [Suspect]
     Active Substance: CARBOPLATIN
     Indication: Metastatic neoplasm
     Route: 065
  4. LEUPROLIDE [Suspect]
     Active Substance: LEUPROLIDE
     Indication: Metastatic neoplasm
     Route: 065

REACTIONS (7)
  - Wound infection [Unknown]
  - Pancytopenia [Unknown]
  - Scrotal swelling [Unknown]
  - Lymphoedema [Unknown]
  - Pleural effusion [Unknown]
  - Weight decreased [Unknown]
  - Treatment failure [Unknown]
